FAERS Safety Report 6158588-9 (Version None)
Quarter: 2009Q2

REPORT INFORMATION
  Report Type: 
  Country: None (occurrence: None)
  Receive Date: 20090417
  Receipt Date: 20090414
  Transmission Date: 20091009
  Serious: Yes (Hospitalization)
  Sender: FDA-Public Use
  Company Number: US-AVENTIS-200913167US

PATIENT
  Sex: Male

DRUGS (9)
  1. LANTUS [Suspect]
     Dosage: DOSE: 20 UNITS
     Route: 058
     Dates: start: 20090101, end: 20090413
  2. PLAVIX [Concomitant]
  3. IMDUR [Concomitant]
  4. METFORMIN HCL [Concomitant]
  5. NEXIUM [Concomitant]
  6. ORAL ANTIDIABETICS [Concomitant]
  7. LOPID [Concomitant]
  8. LOTREL [Concomitant]
     Dosage: DOSE: 5/20
  9. ZOCOR [Concomitant]

REACTIONS (2)
  - CEREBROVASCULAR ACCIDENT [None]
  - RASH PRURITIC [None]
